FAERS Safety Report 6059576-3 (Version None)
Quarter: 2009Q1

REPORT INFORMATION
  Report Type: 
  Country: None (occurrence: None)
  Receive Date: 20090128
  Receipt Date: 20090115
  Transmission Date: 20090719
  Serious: Yes (Hospitalization)
  Sender: FDA-Public Use
  Company Number: 237175J08USA

PATIENT
  Age: 38 Year
  Sex: Female

DRUGS (6)
  1. REBIF [Suspect]
     Indication: MULTIPLE SCLEROSIS
     Dosage: 44 MCG, 3 IN 1 WEEKS, SUBCUTANEOUS
     Route: 058
     Dates: start: 20070817
  2. LEXAPRO [Concomitant]
  3. ADVIL LIQUI-GELS [Concomitant]
  4. ADVAIR (SERETIDE) [Concomitant]
  5. SINGULAIR (MONTELUKAST /01362601/) [Concomitant]
  6. PROVENTIL INHALER (SALBUTAMOL /00139501/) [Concomitant]

REACTIONS (7)
  - CONDITION AGGRAVATED [None]
  - GLIOMA [None]
  - IMPAIRED GASTRIC EMPTYING [None]
  - MIGRAINE [None]
  - MULTIPLE SCLEROSIS [None]
  - PYREXIA [None]
  - VERTIGO [None]
